FAERS Safety Report 10555459 (Version 1)
Quarter: 2014Q4

REPORT INFORMATION
  Report Type: Report from Study
  Country: NL (occurrence: NL)
  Receive Date: 20141030
  Receipt Date: 20141030
  Transmission Date: 20150529
  Serious: Yes (Death)
  Sender: FDA-Public Use
  Company Number: NL-ABBVIE-14P-114-1301765-00

PATIENT
  Age: 74 Year
  Sex: Male

DRUGS (1)
  1. LEUPRORELINE (LUCRIN) [Suspect]
     Active Substance: LEUPROLIDE ACETATE
     Indication: PROSTATE CANCER
     Route: 058
     Dates: start: 20111201

REACTIONS (1)
  - Death [Fatal]

NARRATIVE: CASE EVENT DATE: 20140822
